FAERS Safety Report 11983537 (Version 14)
Quarter: 2017Q3

REPORT INFORMATION
  Report Type: Spontaneous
  Country: US (occurrence: US)
  Receive Date: 20160201
  Receipt Date: 20170929
  Transmission Date: 20171127
  Serious: Yes (Hospitalization)
  Sender: FDA-Public Use
  Company Number: US-ACTELION PHARMACEUTICALS US, INC.-A-US2016-130726

PATIENT
  Age: 68 Year
  Sex: Female
  Weight: 53.52 kg

DRUGS (6)
  1. CEFTIN [Suspect]
     Active Substance: CEFUROXIME AXETIL
     Indication: BRONCHITIS
     Route: 065
  2. SILDENAFIL. [Concomitant]
     Active Substance: SILDENAFIL
  3. OXYGEN. [Concomitant]
     Active Substance: OXYGEN
     Dosage: 1.5 L, UNK
  4. TYVASO [Concomitant]
     Active Substance: TREPROSTINIL
     Dosage: 1 BREATH, QID
  5. REMODULIN [Concomitant]
     Active Substance: TREPROSTINIL
  6. TRACLEER [Suspect]
     Active Substance: BOSENTAN
     Indication: PULMONARY ARTERIAL HYPERTENSION
     Dosage: 125 MG, BID
     Route: 048
     Dates: start: 20060922

REACTIONS (28)
  - Abdominal discomfort [Unknown]
  - Condition aggravated [Unknown]
  - Respiratory syncytial virus infection [Unknown]
  - Lung infection [Unknown]
  - Bronchitis [Unknown]
  - Nasopharyngitis [Unknown]
  - Cough [Unknown]
  - Heart rate increased [Unknown]
  - Headache [Unknown]
  - Unevaluable event [Unknown]
  - Musculoskeletal chest pain [Unknown]
  - Malaise [Unknown]
  - Fatigue [Unknown]
  - Pyrexia [Unknown]
  - Oxygen saturation decreased [Unknown]
  - Wheezing [Unknown]
  - Paraesthesia [Unknown]
  - Hypoaesthesia [Unknown]
  - Nasal congestion [Unknown]
  - Respiratory distress [Unknown]
  - Haemoptysis [Unknown]
  - Dry throat [Unknown]
  - Pseudocroup [Unknown]
  - Respiratory tract infection [Unknown]
  - Chest pain [Unknown]
  - Skin tightness [Unknown]
  - Influenza [Unknown]
  - Palpitations [Unknown]

NARRATIVE: CASE EVENT DATE: 20160123
